FAERS Safety Report 7311680-5 (Version None)
Quarter: 2011Q1

REPORT INFORMATION
  Report Type: 
  Country: None (occurrence: None)
  Receive Date: 20110224
  Receipt Date: 20110217
  Transmission Date: 20110831
  Serious: Yes (Other)
  Sender: FDA-Public Use
  Company Number: US-GENZYME-MOZO-1000468

PATIENT
  Sex: Female

DRUGS (3)
  1. NEUPOGEN [Suspect]
     Indication: MYELOID LEUKAEMIA
     Dosage: 10 MCG/KG, QD
     Route: 058
  2. SORAFENIB [Suspect]
     Indication: MYELOID LEUKAEMIA
     Dosage: 600 MG, BID
     Route: 048
  3. MOZOBIL [Suspect]
     Indication: MYELOID LEUKAEMIA
     Dosage: 240 MCG/KG, QD
     Route: 058

REACTIONS (2)
  - BLINDNESS UNILATERAL [None]
  - LEUKOCYTOSIS [None]
